FAERS Safety Report 6636305-3 (Version None)
Quarter: 2010Q1

REPORT INFORMATION
  Report Type: 
  Country: None (occurrence: None)
  Receive Date: 20100226
  Receipt Date: 20100203
  Transmission Date: 20100710
  Serious: No
  Sender: FDA-Public Use
  Company Number: 2010-00225

PATIENT
  Sex: Male

DRUGS (1)
  1. ZICAM COLD REMEDY NASAL GEL [Suspect]
     Dosage: AS DIRECTED -  2 DOSES; AFTER 2 DOSES
     Dates: start: 20050201

REACTIONS (2)
  - AGEUSIA [None]
  - ANOSMIA [None]
